FAERS Safety Report 7061216-1 (Version None)
Quarter: 2010Q4

REPORT INFORMATION
  Report Type: 
  Country: None (occurrence: None)
  Receive Date: 20101026
  Receipt Date: 20101019
  Transmission Date: 20110411
  Serious: Yes (Other)
  Sender: FDA-Public Use
  Company Number: US-PFIZER INC-2010132866

PATIENT
  Sex: Female
  Weight: 76.19 kg

DRUGS (3)
  1. CHANTIX [Suspect]
     Indication: SMOKING CESSATION THERAPY
     Dosage: 1 MG, 2X/DAY
     Route: 048
     Dates: start: 20100901, end: 20101015
  2. ADVIL PM [Concomitant]
     Indication: SLEEP DISORDER
     Dosage: 200 MG, UNK
     Route: 048
  3. ALBUTEROL SULFATE [Concomitant]
     Indication: ASTHMA
     Dosage: UNK

REACTIONS (3)
  - ABNORMAL DREAMS [None]
  - ANXIETY [None]
  - PANIC REACTION [None]
